FAERS Safety Report 12714711 (Version 1)
Quarter: 2016Q3

REPORT INFORMATION
  Report Type: Spontaneous
  Country: US (occurrence: US)
  Receive Date: 20160905
  Receipt Date: 20160905
  Transmission Date: 20161109
  Serious: Yes (Death)
  Sender: FDA-Public Use
  Company Number: US-ABBVIE-16K-163-1718092-00

PATIENT
  Age: 77 Year
  Sex: Male
  Weight: 95.34 kg

DRUGS (2)
  1. HUMIRA [Suspect]
     Active Substance: ADALIMUMAB
     Indication: RHEUMATOID ARTHRITIS
     Route: 058
     Dates: start: 201509, end: 201511
  2. HUMIRA [Suspect]
     Active Substance: ADALIMUMAB
     Route: 058
     Dates: start: 201512, end: 20160308

REACTIONS (6)
  - Drug effect incomplete [Not Recovered/Not Resolved]
  - Rheumatoid arthritis [Fatal]
  - Respiratory failure [Fatal]
  - Decreased interest [Not Recovered/Not Resolved]
  - Vomiting [Not Recovered/Not Resolved]
  - Arthralgia [Not Recovered/Not Resolved]

NARRATIVE: CASE EVENT DATE: 201602
